FAERS Safety Report 13796976 (Version 1)
Quarter: 2017Q3

REPORT INFORMATION
  Report Type: Spontaneous
  Country: US (occurrence: US)
  Receive Date: 20170726
  Receipt Date: 20170726
  Transmission Date: 20171127
  Serious: No
  Sender: FDA-Public Use
  Company Number: US-009507513-1707USA010625

PATIENT
  Age: 30 Year
  Sex: Female

DRUGS (1)
  1. NEXPLANON [Suspect]
     Active Substance: ETONOGESTREL
     Indication: CONTRACEPTION
     Dosage: 1 DF, UNK
     Route: 059
     Dates: start: 20170522, end: 20170531

REACTIONS (3)
  - Device expulsion [Recovered/Resolved]
  - Product use issue [Unknown]
  - Obesity [Unknown]

NARRATIVE: CASE EVENT DATE: 201705
